FAERS Safety Report 4949905-3 (Version None)
Quarter: 2006Q1

REPORT INFORMATION
  Report Type: 
  Country: None (occurrence: None)
  Receive Date: 20060314
  Receipt Date: 20060307
  Transmission Date: 20060701
  Serious: Yes (Hospitalization)
  Sender: FDA-Public Use
  Company Number: 200610171BYL

PATIENT
  Age: 33 Year
  Sex: Female

DRUGS (1)
  1. AVELOX [Suspect]
     Indication: UPPER RESPIRATORY TRACT INFLAMMATION
     Dosage: 400 MG, QD, ORAL
     Route: 048
     Dates: start: 20060204

REACTIONS (11)
  - ANAPHYLACTOID REACTION [None]
  - CHILLS [None]
  - DYSPNOEA [None]
  - ERYTHEMA [None]
  - EXOPHTHALMOS [None]
  - FACE OEDEMA [None]
  - FLUSHING [None]
  - HEART RATE INCREASED [None]
  - OEDEMA PERIPHERAL [None]
  - OXYGEN SATURATION DECREASED [None]
  - TACHYPNOEA [None]
